FAERS Safety Report 10142647 (Version 1)
Quarter: 2014Q2

REPORT INFORMATION
  Report Type: Spontaneous
  Country: GB (occurrence: GB)
  Receive Date: 20140430
  Receipt Date: 20140430
  Transmission Date: 20141212
  Serious: Yes (Other)
  Sender: FDA-Public Use
  Company Number: GB-AMGEN INC.-GBRSP2014029861

PATIENT
  Age: 37 Year
  Sex: Female
  Weight: 93.2 kg

DRUGS (7)
  1. ARANESP [Suspect]
     Indication: NEPHROGENIC ANAEMIA
     Dosage: 20 MUG, QWK
     Route: 058
     Dates: start: 20140318, end: 20140421
  2. SODIUM BICARBONATE [Concomitant]
     Dosage: 1 G, TID
     Route: 065
  3. DOXAZOSIN [Concomitant]
     Indication: HYPERTENSION
     Dosage: 2 MG, BID
     Route: 048
     Dates: start: 20140113
  4. RAMIPRIL [Concomitant]
     Indication: HYPERTENSION
     Dosage: 5 MG, BID
     Route: 048
     Dates: start: 20140205
  5. AMLODIPINE [Concomitant]
     Indication: HYPERTENSION
     Dosage: 5 MG, QD
     Route: 048
     Dates: start: 20140226
  6. FUROSEMIDE [Concomitant]
     Indication: OEDEMA
     Dosage: 160 MG, QD
     Route: 048
     Dates: start: 20140306
  7. PREDNISOLONE [Concomitant]
     Indication: HENOCH-SCHONLEIN PURPURA NEPHRITIS
     Dosage: 20 MG, QD
     Route: 048
     Dates: start: 20140402

REACTIONS (5)
  - Dyspnoea [Unknown]
  - Swelling face [Unknown]
  - Lip swelling [Unknown]
  - Throat tightness [Unknown]
  - Angioedema [Recovered/Resolved]
